FAERS Safety Report 17115241 (Version 1)
Quarter: 2019Q4

REPORT INFORMATION
  Report Type: Spontaneous
  Country: US (occurrence: US)
  Receive Date: 20191204
  Receipt Date: 20191204
  Transmission Date: 20200122
  Serious: No
  Sender: FDA-Public Use
  Company Number: None

PATIENT
  Sex: Male

DRUGS (9)
  1. COMBIVENT [Suspect]
     Active Substance: ALBUTEROL SULFATE\IPRATROPIUM BROMIDE
  2. METOPROLOL. [Concomitant]
     Active Substance: METOPROLOL
  3. COQ10 [Concomitant]
     Active Substance: UBIDECARENONE
  4. VENTOLIN [Suspect]
     Active Substance: ALBUTEROL SULFATE
  5. ALBUTERAL [Concomitant]
     Active Substance: ALBUTEROL
  6. XARELTO [Concomitant]
     Active Substance: RIVAROXABAN
  7. VIT B [Concomitant]
     Active Substance: VITAMIN B
  8. FISH OIL [Concomitant]
     Active Substance: FISH OIL
  9. VITAMIN C [Concomitant]
     Active Substance: ASCORBIC ACID

REACTIONS (1)
  - Drug ineffective [None]
